FAERS Safety Report 9706844 (Version 4)
Quarter: 2014Q1

REPORT INFORMATION
  Report Type: Spontaneous
  Country: JP (occurrence: JP)
  Receive Date: 20131125
  Receipt Date: 20140122
  Transmission Date: 20141002
  Serious: Yes (Hospitalization)
  Sender: FDA-Public Use
  Company Number: JP-ELI_LILLY_AND_COMPANY-JP201311003806

PATIENT
  Age: 70 Year
  Sex: Male

DRUGS (1)
  1. CYMBALTA [Suspect]
     Indication: BACK PAIN
     Dosage: 50 MG, UNK
     Route: 048
     Dates: start: 201309, end: 20131023

REACTIONS (2)
  - Hepatic function abnormal [Not Recovered/Not Resolved]
  - Off label use [Recovered/Resolved]
